FAERS Safety Report 16019791 (Version 3)
Quarter: 2019Q2

REPORT INFORMATION
  Report Type: Spontaneous
  Country: US (occurrence: US)
  Receive Date: 20190228
  Receipt Date: 20190416
  Transmission Date: 20190711
  Serious: No
  Sender: FDA-Public Use
  Company Number: US-PFIZER INC-2019090240

PATIENT
  Age: 61 Year
  Sex: Male
  Weight: 79.38 kg

DRUGS (3)
  1. NICOTROL [Suspect]
     Active Substance: NICOTINE
     Dosage: UNK, 2X/DAY
     Dates: start: 201903
  2. NICOTROL [Suspect]
     Active Substance: NICOTINE
     Indication: SMOKING CESSATION THERAPY
     Dosage: STRENGTH 10MG (4MG DELIVERED)
  3. NICOTROL [Suspect]
     Active Substance: NICOTINE
     Dosage: 4 MG, UNK

REACTIONS (3)
  - Product physical consistency issue [Unknown]
  - Dyspnoea [Unknown]
  - Drug ineffective [Not Recovered/Not Resolved]

NARRATIVE: CASE EVENT DATE: 201903
